FAERS Safety Report 9405869 (Version 2)
Quarter: 2014Q1

REPORT INFORMATION
  Report Type: Spontaneous
  Country: US (occurrence: US)
  Receive Date: 20130717
  Receipt Date: 20140211
  Transmission Date: 20141002
  Serious: Yes (Death, Hospitalization)
  Sender: FDA-Public Use
  Company Number: US-GLAXOSMITHKLINE-A1033256A

PATIENT
  Age: 74 Year
  Sex: Male
  Weight: 104.5 kg

DRUGS (1)
  1. AVANDIA [Suspect]
     Indication: DIABETES MELLITUS
     Dosage: 4MG PER DAY
     Route: 048
     Dates: start: 20041024, end: 200711

REACTIONS (4)
  - Cardiac failure chronic [Fatal]
  - Cardiac failure congestive [Unknown]
  - Pulmonary hypertension [Unknown]
  - Coronary artery disease [Unknown]
